FAERS Safety Report 19651305 (Version 3)
Quarter: 2021Q3

REPORT INFORMATION
  Report Type: Report from Study
  Country: FR (occurrence: FR)
  Receive Date: 20210803
  Receipt Date: 20210906
  Transmission Date: 20211014
  Serious: Yes (Other)
  Sender: FDA-Public Use
  Company Number: FR-GW PHARMA-202107FRGW03635

PATIENT

DRUGS (9)
  1. EPIDIOLEX [Suspect]
     Active Substance: CANNABIDIOL
     Dosage: 200 MILLIGRAM, BID (IN THE MORNING AND EVENING)
     Route: 048
     Dates: start: 2021
  2. EPIDIOLEX [Suspect]
     Active Substance: CANNABIDIOL
     Indication: LENNOX-GASTAUT SYNDROME
     Dosage: 2.44 MILLIGRAM/KILOGRAM, BID (200 MILLIGRAMS MORNING AND EVENING)
     Route: 048
     Dates: start: 20201023, end: 2021
  3. EPITOMAX [Concomitant]
     Active Substance: TOPIRAMATE
     Indication: PRODUCT USED FOR UNKNOWN INDICATION
     Dosage: 100 MILLIGRAM, QD
     Route: 065
     Dates: start: 20210428, end: 2021
  4. LAMICTAL [Concomitant]
     Active Substance: LAMOTRIGINE
     Indication: LENNOX-GASTAUT SYNDROME
     Dosage: 100 MILLIGRAM, BID
     Route: 065
     Dates: start: 20210429
  5. MICROPAKINE [Concomitant]
     Active Substance: VALPROATE SODIUM
     Indication: PRODUCT USED FOR UNKNOWN INDICATION
     Dosage: 500 MILLIGRAM, BID
     Route: 065
  6. EPITOMAX [Concomitant]
     Active Substance: TOPIRAMATE
     Dosage: 50 MILLIGRAM, BID
     Route: 065
     Dates: start: 2021
  7. RISPERIDONE. [Concomitant]
     Active Substance: RISPERIDONE
     Indication: PRODUCT USED FOR UNKNOWN INDICATION
     Dosage: 1 MILLIGRAM, QD
     Route: 065
  8. URBANYL [Concomitant]
     Active Substance: CLOBAZAM
     Indication: PRODUCT USED FOR UNKNOWN INDICATION
     Dosage: 20 MILLIGRAM, QD
     Route: 065
  9. URBANYL [Concomitant]
     Active Substance: CLOBAZAM
     Dosage: 10 MILLIGRAM, (ONE TABLET IN THE EVENING)
     Route: 065

REACTIONS (2)
  - Somnolence [Recovered/Resolved]
  - Drug ineffective [Unknown]

NARRATIVE: CASE EVENT DATE: 202012
